FAERS Safety Report 4304234-6 (Version None)
Quarter: 2004Q1

REPORT INFORMATION
  Report Type: 
  Country: None (occurrence: None)
  Receive Date: 20040224
  Receipt Date: 20040210
  Transmission Date: 20041129
  Serious: Yes (Other)
  Sender: FDA-Public Use
  Company Number: US-JNJFOC-20030906217

PATIENT
  Sex: Female

DRUGS (3)
  1. REMICADE [Suspect]
     Indication: PYODERMA GANGRENOSUM
     Dosage: INTRAVENOUS
     Route: 042
  2. PREDNISONE [Concomitant]
  3. DAPSONE [Concomitant]

REACTIONS (1)
  - LUPUS-LIKE SYNDROME [None]
